FAERS Safety Report 7780079-X (Version None)
Quarter: 2011Q3

REPORT INFORMATION
  Report Type: 
  Country: None (occurrence: None)
  Receive Date: 20110927
  Receipt Date: 20110922
  Transmission Date: 20111222
  Serious: Yes (Hospitalization)
  Sender: FDA-Public Use
  Company Number: JP-PFIZER INC-2011188922

PATIENT
  Age: 76 Year
  Sex: Female

DRUGS (16)
  1. LOXOPROFEN SODIUM [Concomitant]
     Dosage: UNK
  2. RIZE [Concomitant]
     Dosage: UNK
  3. PREDNISOLONE [Concomitant]
     Dosage: UNK
  4. BEPRICOR [Concomitant]
     Dosage: UNK
  5. OPALMON [Concomitant]
     Dosage: UNK
  6. BISOPROLOL FUMARATE [Concomitant]
     Dosage: UNK
  7. LENDORMIN [Concomitant]
     Dosage: UNK
  8. ROCALTROL [Concomitant]
     Dosage: UNK
  9. DOPS [Concomitant]
     Dosage: UNK
  10. WARFARIN [Concomitant]
     Dosage: UNK
  11. METHYCOBAL [Concomitant]
     Dosage: UNK
  12. DIGOXIN [Concomitant]
     Dosage: UNK
  13. GABAPENTIN [Suspect]
     Indication: PAIN IN EXTREMITY
     Dosage: 200 MG/DAY ONLY WHEN DIALYSIS WAS PERFORMED
     Route: 048
  14. PAXIL [Concomitant]
     Dosage: UNK
  15. SELBEX [Concomitant]
     Dosage: UNK
  16. LEVOTHYROXINE SODIUM [Concomitant]
     Dosage: UNK

REACTIONS (1)
  - DELIRIUM [None]
